FAERS Safety Report 12446535 (Version 3)
Quarter: 2016Q3

REPORT INFORMATION
  Report Type: Spontaneous
  Country: US (occurrence: US)
  Receive Date: 20160608
  Receipt Date: 20160819
  Transmission Date: 20161109
  Serious: Yes (Hospitalization, Other)
  Sender: FDA-Public Use
  Company Number: US-UNITED THERAPEUTICS-UNT-2016-008767

PATIENT
  Age: 3 Year
  Sex: Male

DRUGS (10)
  1. BENADRYL [Concomitant]
     Active Substance: DIPHENHYDRAMINE HYDROCHLORIDE
     Indication: PRODUCT USED FOR UNKNOWN INDICATION
     Dosage: UNK, PRN
  2. UNITUXIN [Suspect]
     Active Substance: DINUTUXIMAB
     Dosage: UNK
     Dates: start: 20160321, end: 20160324
  3. ATIVAN [Concomitant]
     Active Substance: LORAZEPAM
     Indication: PRODUCT USED FOR UNKNOWN INDICATION
     Dosage: UNK, PRN
  4. UNITUXIN [Suspect]
     Active Substance: DINUTUXIMAB
     Indication: NEUROBLASTOMA
     Dosage: 17.5 MG/M2, QD
     Route: 041
     Dates: start: 20160125, end: 20160128
  5. UNITUXIN [Suspect]
     Active Substance: DINUTUXIMAB
     Dosage: UNK
     Dates: start: 20160222, end: 20160225
  6. UNITUXIN [Suspect]
     Active Substance: DINUTUXIMAB
     Dosage: UNK
     Dates: start: 20160613, end: 20160616
  7. ZOFRAN [Concomitant]
     Active Substance: ONDANSETRON HYDROCHLORIDE
     Indication: PRODUCT USED FOR UNKNOWN INDICATION
     Dosage: UNK, PRN
  8. UNITUXIN [Suspect]
     Active Substance: DINUTUXIMAB
     Dosage: UNK
     Dates: start: 20160418, end: 20160421
  9. BIOTENE                            /03475601/ [Concomitant]
     Indication: PRODUCT USED FOR UNKNOWN INDICATION
     Dosage: UNK
  10. MIRALAX [Concomitant]
     Active Substance: POLYETHYLENE GLYCOL 3350
     Indication: PRODUCT USED FOR UNKNOWN INDICATION
     Dosage: 1/4 CAPSULE, TWICE DAILY

REACTIONS (19)
  - Abdominal compartment syndrome [Unknown]
  - Shock [Unknown]
  - Portal hypertension [Unknown]
  - Lacrimation decreased [Unknown]
  - Pupils unequal [Unknown]
  - Hyperbilirubinaemia [Unknown]
  - Constipation [Recovered/Resolved]
  - Capillary leak syndrome [Unknown]
  - Pyrexia [Unknown]
  - Pain [Unknown]
  - Nausea [Unknown]
  - Clostridium difficile colitis [Unknown]
  - Diarrhoea [Unknown]
  - Vomiting [Unknown]
  - Hypertension [Unknown]
  - Weight increased [Unknown]
  - Transaminases increased [Unknown]
  - Tachycardia [Unknown]
  - Ascites [Not Recovered/Not Resolved]

NARRATIVE: CASE EVENT DATE: 2016
